FAERS Safety Report 15595564 (Version 8)
Quarter: 2019Q1

REPORT INFORMATION
  Report Type: Report from Study
  Country: None (occurrence: US)
  Receive Date: 20181107
  Receipt Date: 20190313
  Transmission Date: 20190417
  Serious: Yes (Hospitalization)
  Sender: FDA-Public Use
  Company Number: US-ABBVIE-18K-163-2544572-00

PATIENT
  Age: 25 Year
  Sex: Male
  Weight: 65.83 kg

DRUGS (3)
  1. HUMIRA [Suspect]
     Active Substance: ADALIMUMAB
     Dosage: CITRATE FREE
     Route: 058
     Dates: start: 2018
  2. HUMIRA [Suspect]
     Active Substance: ADALIMUMAB
     Indication: CROHN^S DISEASE
     Route: 058
     Dates: start: 20181102, end: 20181102
  3. HUMIRA [Suspect]
     Active Substance: ADALIMUMAB
     Indication: PSORIASIS
     Dosage: STARTER PACK,
     Route: 058
     Dates: start: 20181012, end: 20181012

REACTIONS (23)
  - Generalised tonic-clonic seizure [Recovered/Resolved]
  - Fall [Recovering/Resolving]
  - Epistaxis [Unknown]
  - Fatigue [Not Recovered/Not Resolved]
  - Generalised tonic-clonic seizure [Recovered/Resolved]
  - Constipation [Recovering/Resolving]
  - Abdominal pain upper [Recovering/Resolving]
  - Musculoskeletal stiffness [Not Recovered/Not Resolved]
  - Depressed mood [Unknown]
  - Fear [Unknown]
  - Loss of personal independence in daily activities [Unknown]
  - Contusion [Not Recovered/Not Resolved]
  - Nausea [Recovering/Resolving]
  - Diarrhoea [Recovering/Resolving]
  - Rectal haemorrhage [Unknown]
  - Weight decreased [Unknown]
  - Insomnia [Unknown]
  - Pain in extremity [Not Recovered/Not Resolved]
  - Decreased appetite [Recovering/Resolving]
  - Arthralgia [Unknown]
  - Head injury [Recovered/Resolved]
  - Respiratory tract infection [Recovered/Resolved]
  - Eye contusion [Not Recovered/Not Resolved]

NARRATIVE: CASE EVENT DATE: 2018
